FAERS Safety Report 11251008 (Version 2)
Quarter: 2015Q3

REPORT INFORMATION
  Report Type: Spontaneous
  Country: US (occurrence: US)
  Receive Date: 20150708
  Receipt Date: 20150803
  Transmission Date: 20151125
  Serious: Yes (Hospitalization)
  Sender: FDA-Public Use
  Company Number: US-ELI_LILLY_AND_COMPANY-US201009006483

PATIENT
  Sex: Female

DRUGS (7)
  1. ZYPREXA RELPREVV [Suspect]
     Active Substance: OLANZAPINE PAMOATE
     Dosage: 300 MG, EVERY 2 WEEKS
     Route: 030
     Dates: start: 20100909, end: 20110726
  2. NEURONTIN [Concomitant]
     Active Substance: GABAPENTIN
     Indication: MOOD ALTERED
     Dosage: 800 MG, 2/D
     Dates: start: 1990
  3. ATIVAN [Concomitant]
     Active Substance: LORAZEPAM
     Dosage: UNK MG, 2/D
  4. ZYPREXA RELPREVV [Suspect]
     Active Substance: OLANZAPINE PAMOATE
     Indication: SCHIZOPHRENIA
     Dosage: 210 MG,EVERY 2 WEEKS
     Route: 030
     Dates: start: 20100826, end: 20100908
  5. CLOZARIL [Concomitant]
     Active Substance: CLOZAPINE
     Indication: PSYCHOTIC DISORDER
     Dosage: 500 MG, DAILY (1/D)
     Dates: start: 1980
  6. LOSARTAN. [Concomitant]
     Active Substance: LOSARTAN
     Indication: ADVERSE EVENT
     Dosage: 2 MG, BID
  7. DEPAKOTE [Concomitant]
     Active Substance: DIVALPROEX SODIUM
     Indication: MOOD ALTERED
     Dosage: 1500 MG, DAILY (1/D)

REACTIONS (3)
  - Orthostatic hypotension [Unknown]
  - Blood glucose increased [Unknown]
  - Akathisia [Unknown]
